FAERS Safety Report 14194445 (Version 1)
Quarter: 2017Q4

REPORT INFORMATION
  Report Type: Spontaneous
  Country: US (occurrence: US)
  Receive Date: 20171115
  Receipt Date: 20171115
  Transmission Date: 20180321
  Serious: Yes (Life-Threatening, Hospitalization, Disabling)
  Sender: FDA-Public Use
  Company Number: None

PATIENT
  Age: 79 Year
  Sex: Male
  Weight: 64.8 kg

DRUGS (1)
  1. WARFARIN [Suspect]
     Active Substance: WARFARIN
     Indication: MITRAL VALVE REPLACEMENT
     Dosage: STRENGTH 6 MG DAILY EXCEPT 4 MG TU,TH,SAT MG MILLIGRAMS
     Route: 048

REACTIONS (2)
  - Intraventricular haemorrhage [None]
  - Fall [None]

NARRATIVE: CASE EVENT DATE: 20171114
